FAERS Safety Report 18094727 (Version 2)
Quarter: 2020Q3

REPORT INFORMATION
  Report Type: Spontaneous
  Country: US (occurrence: US)
  Receive Date: 20200730
  Receipt Date: 20200805
  Transmission Date: 20201103
  Serious: Yes (Hospitalization, Other)
  Sender: FDA-Public Use
  Company Number: US-ELI_LILLY_AND_COMPANY-US202007009784

PATIENT
  Age: 60 Year
  Sex: Male

DRUGS (9)
  1. HUMALOG KWIKPEN [Suspect]
     Active Substance: INSULIN LISPRO
     Indication: DIABETES MELLITUS
     Dosage: UNK UNK, UNKNOWN
     Route: 065
     Dates: start: 2016
  2. HUMALOG KWIKPEN [Suspect]
     Active Substance: INSULIN LISPRO
     Indication: DIABETES MELLITUS
     Dosage: UNK UNK, UNKNOWN
     Route: 065
     Dates: start: 2016
  3. INVOKANA [Suspect]
     Active Substance: CANAGLIFLOZIN
     Indication: DIABETES MELLITUS
     Dosage: UNK UNK, UNKNOWN
     Route: 065
  4. JARDIANCE [Concomitant]
     Active Substance: EMPAGLIFLOZIN
     Indication: DIABETES MELLITUS
     Dosage: UNK UNK, UNKNOWN
     Dates: start: 2013
  5. HUMALOG KWIKPEN [Suspect]
     Active Substance: INSULIN LISPRO
     Dosage: UNK UNK, UNKNOWN
     Route: 065
  6. OXYCONTIN [Concomitant]
     Active Substance: OXYCODONE HYDROCHLORIDE
     Indication: PAIN
  7. TRULICITY [Suspect]
     Active Substance: DULAGLUTIDE
     Indication: DIABETES MELLITUS
     Dosage: 1.5 MG, UNKNOWN
     Route: 058
  8. LANTUS [Concomitant]
     Active Substance: INSULIN GLARGINE
     Indication: DIABETES MELLITUS
     Dosage: UNK UNK, UNKNOWN
     Route: 065
  9. HUMALOG KWIKPEN [Suspect]
     Active Substance: INSULIN LISPRO
     Dosage: UNK UNK, UNKNOWN
     Route: 065

REACTIONS (19)
  - Cerebrovascular accident [Recovered/Resolved]
  - Arthritis [Recovering/Resolving]
  - Insulin resistance [Not Recovered/Not Resolved]
  - Gait disturbance [Not Recovered/Not Resolved]
  - Drug hypersensitivity [Recovered/Resolved]
  - Dyspnoea [Recovering/Resolving]
  - Blood pressure increased [Unknown]
  - Blood glucose increased [Unknown]
  - Obesity [Recovering/Resolving]
  - Movement disorder [Not Recovered/Not Resolved]
  - Peripheral artery aneurysm [Recovered/Resolved]
  - Thrombosis [Recovering/Resolving]
  - Respiratory failure [Recovered/Resolved]
  - Drug ineffective [Unknown]
  - Blood glucose decreased [Unknown]
  - Weight increased [Not Recovered/Not Resolved]
  - Respiratory disorder [Recovered/Resolved]
  - Deep vein thrombosis [Recovering/Resolving]
  - Infection [Recovered/Resolved]

NARRATIVE: CASE EVENT DATE: 201912
